FAERS Safety Report 17699410 (Version 7)
Quarter: 2022Q2

REPORT INFORMATION
  Report Type: Spontaneous
  Country: CA (occurrence: CA)
  Receive Date: 20200423
  Receipt Date: 20220616
  Transmission Date: 20220721
  Serious: Yes (Disabling, Other)
  Sender: FDA-Public Use
  Company Number: CA-TAKEDA-2020TUS018636

PATIENT
  Age: 59 Year
  Sex: Female
  Weight: 115 kg

DRUGS (20)
  1. PANTOPRAZOLE [Suspect]
     Active Substance: PANTOPRAZOLE
     Dosage: UNK
     Route: 065
  2. PANTOPRAZOLE [Suspect]
     Active Substance: PANTOPRAZOLE
     Dosage: UNK
     Route: 065
  3. AMLODIPINE BESYLATE [Suspect]
     Active Substance: AMLODIPINE BESYLATE
     Dosage: UNK
     Route: 065
  4. VENLAFAXINE HCL [Suspect]
     Active Substance: VENLAFAXINE HYDROCHLORIDE
     Dosage: UNK
     Route: 065
  5. VENLAFAXINE [Suspect]
     Active Substance: VENLAFAXINE HYDROCHLORIDE
     Dosage: UNK
     Route: 065
  6. OMNARIS [Suspect]
     Active Substance: CICLESONIDE
     Dosage: UNK
     Route: 065
  7. HYDROCHLOROTHIAZIDE [Suspect]
     Active Substance: HYDROCHLOROTHIAZIDE
     Dosage: UNK
     Route: 065
  8. JANUVIA [Suspect]
     Active Substance: SITAGLIPTIN PHOSPHATE
     Dosage: UNK
     Route: 065
  9. ALBUTEROL [Suspect]
     Active Substance: ALBUTEROL
     Indication: Asthma
     Dosage: UNK
     Route: 065
  10. SPIRIVA [Suspect]
     Active Substance: TIOTROPIUM BROMIDE MONOHYDRATE
     Dosage: UNK
     Route: 048
  11. SPIRIVA [Suspect]
     Active Substance: TIOTROPIUM BROMIDE MONOHYDRATE
     Dosage: UNK
     Route: 065
  12. SYMBICORT [Suspect]
     Active Substance: BUDESONIDE\FORMOTEROL FUMARATE DIHYDRATE
     Dosage: TWO DF, TWO PUFFS TWO TIMES A DAY
     Route: 065
  13. SYMBICORT [Suspect]
     Active Substance: BUDESONIDE\FORMOTEROL FUMARATE DIHYDRATE
     Dosage: TWO DF, TWO PUFFS TWO TIMES A DAY
     Route: 065
  14. SYMBICORT [Suspect]
     Active Substance: BUDESONIDE\FORMOTEROL FUMARATE DIHYDRATE
     Dosage: TWO DF, TWO PUFFS TWO TIMES A DAY
     Route: 065
  15. SYMBICORT [Suspect]
     Active Substance: BUDESONIDE\FORMOTEROL FUMARATE DIHYDRATE
     Dosage: TWO DF, TWO PUFFS TWO TIMES A DAY
     Route: 065
  16. TRAZODONE [Suspect]
     Active Substance: TRAZODONE HYDROCHLORIDE
     Dosage: UNK
     Route: 065
  17. BUDESONIDE [Suspect]
     Active Substance: BUDESONIDE
     Dosage: 2 DOSAGE FORM, QD
     Route: 065
  18. ALBUTEROL SULFATE [Suspect]
     Active Substance: ALBUTEROL SULFATE
     Indication: Asthma
     Dosage: UNK
     Route: 065
  19. TIOTROPIUM BROMIDE [Suspect]
     Active Substance: TIOTROPIUM BROMIDE
     Dosage: UNK
     Route: 048
  20. SYMBICORT [Suspect]
     Active Substance: BUDESONIDE\FORMOTEROL FUMARATE DIHYDRATE
     Dosage: UNK, BID
     Route: 065

REACTIONS (8)
  - Asthma [Unknown]
  - Full blood count abnormal [Unknown]
  - Dyspnoea [Unknown]
  - Loss of personal independence in daily activities [Unknown]
  - Lung diffusion test abnormal [Unknown]
  - Obstructive airways disorder [Unknown]
  - Sleep disorder due to a general medical condition [Unknown]
  - Wheezing [Unknown]
